FAERS Safety Report 7153279-X (Version None)
Quarter: 2010Q4

REPORT INFORMATION
  Report Type: 
  Country: None (occurrence: None)
  Receive Date: 20101209
  Receipt Date: 20101209
  Transmission Date: 20110411
  Serious: Yes (Death)
  Sender: FDA-Public Use
  Company Number: None

PATIENT
  Sex: Female

DRUGS (2)
  1. NEPAFENAC [Suspect]
     Dosage: 1 GTT TID OPH
     Route: 047
     Dates: start: 20100119, end: 20100420
  2. NEPAFENAC [Suspect]
     Dosage: 1 GTT TID OPH
     Route: 047
     Dates: start: 20100519, end: 20100819

REACTIONS (1)
  - PANCREATIC CARCINOMA [None]
